FAERS Safety Report 8997526 (Version 1)
Quarter: 2013Q1

REPORT INFORMATION
  Report Type: Spontaneous
  Country: US (occurrence: US)
  Receive Date: 20130104
  Receipt Date: 20130104
  Transmission Date: 20140127
  Serious: Yes (Other)
  Sender: FDA-Public Use
  Company Number: US-TEVA-374244USA

PATIENT
  Age: 61 Year
  Sex: Female

DRUGS (3)
  1. FLUOROURACIL [Suspect]
     Indication: COLON CANCER
     Dosage: EVERY CYCLE
     Route: 042
  2. ZIV-AFLIBERCEPT (ZALTRAP) [Suspect]
     Indication: COLON CANCER
     Dosage: EVERY CYCLE
     Route: 042
  3. IRINOTECAN [Suspect]
     Indication: COLON CANCER
     Dosage: EVERY CYCLE
     Route: 042

REACTIONS (1)
  - Hypertensive crisis [Recovered/Resolved]
